FAERS Safety Report 8091140-7 (Version None)
Quarter: 2012Q1

REPORT INFORMATION
  Report Type: 
  Country: None (occurrence: None)
  Receive Date: 20120129
  Receipt Date: 20110920
  Transmission Date: 20120608
  Serious: No
  Sender: FDA-Public Use
  Company Number: US-ABBOTT-11P-163-0856537-00

PATIENT
  Sex: Male

DRUGS (4)
  1. UNKNOWN PSORIATIC ARTHRITIS MEDICATION [Concomitant]
     Indication: PSORIATIC ARTHROPATHY
  2. NAPROXEN (ALEVE) [Concomitant]
     Indication: PSORIATIC ARTHROPATHY
  3. MICARDIS [Concomitant]
     Indication: HYPERTENSION
  4. HUMIRA [Suspect]
     Indication: PSORIATIC ARTHROPATHY
     Route: 058
     Dates: start: 20100101

REACTIONS (5)
  - MENISCUS LESION [None]
  - ARTHRALGIA [None]
  - JOINT LOCK [None]
  - JOINT INJURY [None]
  - JOINT SWELLING [None]
